FAERS Safety Report 10794252 (Version 2)
Quarter: 2015Q1

REPORT INFORMATION
  Report Type: Spontaneous
  Country: PT (occurrence: PT)
  Receive Date: 20150213
  Receipt Date: 20150220
  Transmission Date: 20150721
  Serious: Yes (Disabling)
  Sender: FDA-Public Use
  Company Number: PT-ASTRAZENECA-2015SE11956

PATIENT
  Age: 28298 Day
  Sex: Female
  Weight: 70 kg

DRUGS (6)
  1. CRESTOR [Suspect]
     Active Substance: ROSUVASTATIN CALCIUM
     Indication: DYSLIPIDAEMIA
     Route: 048
     Dates: start: 2010, end: 20140814
  2. COZAAR PLUS [Concomitant]
     Indication: HYPERTENSION
     Dosage: LOSARTAN 50 MG + HYDROCHLOROTHIAZIDE 12.5 MG, 2 TABLETS/DAY
     Route: 048
     Dates: start: 2005
  3. AMIODARONA [Concomitant]
     Active Substance: AMIODARONE
     Indication: ATRIAL FIBRILLATION
     Route: 048
     Dates: start: 2010
  4. PRADAXA [Concomitant]
     Active Substance: DABIGATRAN ETEXILATE MESYLATE
     Indication: ATRIAL FIBRILLATION
     Route: 048
     Dates: start: 2013
  5. AMLODIPINA [Concomitant]
     Active Substance: AMLODIPINE BESYLATE
     Indication: HYPERTENSION
     Route: 048
     Dates: start: 2008
  6. LUMINAL [Concomitant]
     Active Substance: PHENOBARBITAL SODIUM
     Indication: TREMOR
     Route: 048
     Dates: start: 2003

REACTIONS (3)
  - Pyrexia [Recovered/Resolved]
  - Gamma-glutamyltransferase increased [Recovered/Resolved]
  - Hepatitis toxic [Recovered/Resolved]

NARRATIVE: CASE EVENT DATE: 20140802
